FAERS Safety Report 5812509-4 (Version None)
Quarter: 2008Q3

REPORT INFORMATION
  Report Type: 
  Country: None (occurrence: None)
  Receive Date: 20080717
  Receipt Date: 20080713
  Transmission Date: 20090109
  Serious: Yes (Hospitalization, Other)
  Sender: FDA-Public Use
  Company Number: BR-JNJFOC-20080703578

PATIENT
  Age: 40 Year
  Sex: Female
  Weight: 55 kg

DRUGS (4)
  1. HALDOL [Suspect]
     Indication: SUICIDE ATTEMPT
     Route: 048
  2. PHENAZOPYRIDINE HCL TAB [Suspect]
     Indication: SUICIDE ATTEMPT
     Dosage: 20 TABLETS
     Route: 048
  3. PROMETHAZINE [Suspect]
     Indication: SUICIDE ATTEMPT
     Dosage: UNSPECIFIED AMOUNT
     Route: 065
  4. CARBAMAZEPINE [Suspect]
     Indication: SUICIDE ATTEMPT
     Dosage: 10 TABLETS
     Route: 048

REACTIONS (3)
  - DEPRESSED LEVEL OF CONSCIOUSNESS [None]
  - MULTIPLE DRUG OVERDOSE [None]
  - SUICIDE ATTEMPT [None]
